FAERS Safety Report 16389688 (Version 2)
Quarter: 2019Q2

REPORT INFORMATION
  Report Type: Spontaneous
  Country: US (occurrence: US)
  Receive Date: 20190604
  Receipt Date: 20190604
  Transmission Date: 20190711
  Serious: No
  Sender: FDA-Public Use
  Company Number: US-GALDERMA-US18037656

PATIENT
  Age: 26 Year
  Sex: Female

DRUGS (3)
  1. PROACTIV MD DAILY OIL CONTROL SPF 30 [Suspect]
     Active Substance: AVOBENZONE\OCTISALATE\OCTOCRYLENE
     Indication: ACNE
     Route: 061
     Dates: start: 201805, end: 201806
  2. PROACTIV MD ADAPALENE ACNE TREATMENT [Suspect]
     Active Substance: ADAPALENE
     Indication: ACNE
     Dosage: 0.1%
     Route: 061
     Dates: start: 201805, end: 201806
  3. PROACTIV MD DEEP CLEANSING FACE WASH [Concomitant]
     Active Substance: COSMETICS
     Indication: ACNE
     Route: 061
     Dates: start: 201805, end: 201806

REACTIONS (8)
  - Erythema [Recovering/Resolving]
  - Skin irritation [Recovering/Resolving]
  - Pain of skin [Recovering/Resolving]
  - Skin fragility [Recovering/Resolving]
  - Inappropriate schedule of product administration [Recovered/Resolved]
  - Rash papular [Recovering/Resolving]
  - Underdose [Recovered/Resolved]
  - Acne [Recovering/Resolving]

NARRATIVE: CASE EVENT DATE: 201805
